FAERS Safety Report 4527365-4 (Version None)
Quarter: 2004Q4

REPORT INFORMATION
  Report Type: 
  Country: None (occurrence: None)
  Receive Date: 20041215
  Receipt Date: 20041203
  Transmission Date: 20050328
  Serious: Yes (Disabling, Other)
  Sender: FDA-Public Use
  Company Number: GB-BRISTOL-MYERS SQUIBB COMPANY-12783445

PATIENT
  Age: 75 Year
  Sex: Female
  Weight: 72 kg

DRUGS (4)
  1. PRAVASTATIN SODIUM [Suspect]
     Indication: BLOOD CHOLESTEROL INCREASED
     Route: 048
     Dates: start: 20040817, end: 20040827
  2. ASPIRIN [Concomitant]
  3. MOXONIDINE [Concomitant]
  4. CARVEDILOL [Concomitant]

REACTIONS (2)
  - INCREASED TENDENCY TO BRUISE [None]
  - JAUNDICE [None]
